FAERS Safety Report 6863614-5 (Version None)
Quarter: 2010Q3

REPORT INFORMATION
  Report Type: 
  Country: None (occurrence: None)
  Receive Date: 20100721
  Receipt Date: 20080303
  Transmission Date: 20110219
  Serious: No
  Sender: FDA-Public Use
  Company Number: US-PFIZER INC-2008021548

PATIENT
  Age: 37 Year
  Sex: Male
  Weight: 68.181 kg

DRUGS (2)
  1. CHANTIX [Suspect]
     Indication: SMOKING CESSATION THERAPY
     Route: 048
     Dates: start: 20071001
  2. DIAZEPAM [Concomitant]
     Indication: INSOMNIA

REACTIONS (2)
  - ABDOMINAL DISCOMFORT [None]
  - INCREASED APPETITE [None]
